FAERS Safety Report 8548706 (Version 2)
Quarter: 2012Q4

REPORT INFORMATION
  Report Type: 
  Country: BY (occurrence: BY)
  Receive Date: 20120507
  Receipt Date: 20120914
  Transmission Date: 20130627
  Serious: Yes (Death)
  Sender: FDA-Public Use
  Company Number: BY-PFIZER INC-2012107264

PATIENT
  Age: 28 Year
  Sex: Male

DRUGS (13)
  1. ZYVOX [Suspect]
     Indication: PNEUMONIA
     Dosage: 600 mg, 2x/day
     Route: 042
     Dates: start: 20120208, end: 20120228
  2. DORIPREX [Concomitant]
     Dosage: 0.5 UNK, every 8 hours
     Route: 042
     Dates: end: 20120218
  3. COLIMICIN [Concomitant]
     Dosage: 2000000 units, every 8 hours
     Dates: start: 20120219
  4. FLUCONAZOLE [Concomitant]
     Dosage: 0.2 UNK, every 12 hours
     Route: 042
  5. FLUIMUCIL [Concomitant]
     Dosage: 3.0 UNK,  every 8 hours
     Route: 042
  6. SOLU-MEDROL [Concomitant]
     Dosage: 0.8 mg/h, via infusion pump
  7. METOCLOPRAMIDE [Concomitant]
     Dosage: 3.0 UNK, every 8 hours
     Route: 042
  8. VITAMIN B1 AND B6 [Concomitant]
     Dosage: 4.0 UNK, every 8 hours
  9. VITAMIN C [Concomitant]
     Dosage: 5%, 10.0 UNK, every 8 hours
     Route: 042
  10. HEPTRAL [Concomitant]
     Dosage: 0.4 UNK, every 12 hours
     Route: 042
  11. DOFAMIN [Concomitant]
     Dosage: 0.5, UNK, 2 mg/h
     Route: 042
  12. FRAGMIN [Concomitant]
     Dosage: 2500 IU, every 24 hours
     Route: 058
  13. FUROSEMID [Concomitant]
     Dosage: 0.6 UNK, every 8 hours
     Route: 042

REACTIONS (1)
  - Multi-organ failure [Fatal]
